FAERS Safety Report 5136968-8 (Version None)
Quarter: 2006Q4

REPORT INFORMATION
  Report Type: 
  Country: None (occurrence: None)
  Receive Date: 20061030
  Receipt Date: 20061017
  Transmission Date: 20070319
  Serious: Yes (Hospitalization)
  Sender: FDA-Public Use
  Company Number: FR-JNJFOC-20061003811

PATIENT
  Age: 27 Year
  Sex: Male
  Weight: 60 kg

DRUGS (5)
  1. REMICADE [Suspect]
     Indication: CROHN'S DISEASE
     Route: 042
  2. IMUREL [Suspect]
     Indication: CROHN'S DISEASE
     Route: 048
  3. KABIVEN [Concomitant]
     Route: 065
  4. SOLU-MEDROL [Concomitant]
     Route: 042
  5. SPASFON [Concomitant]
     Route: 042

REACTIONS (4)
  - BONE MARROW FAILURE [None]
  - HYPOTENSION [None]
  - LEUKOPENIA [None]
  - SEPSIS [None]
